FAERS Safety Report 9670954 (Version 1)
Quarter: 2013Q4

REPORT INFORMATION
  Report Type: Spontaneous
  Country: GB (occurrence: None)
  Receive Date: 20131104
  Receipt Date: 20131104
  Transmission Date: 20140711
  Serious: Yes (Hospitalization)
  Sender: FDA-Public Use
  Company Number: AUR-APL-2013-08901

PATIENT
  Sex: Male

DRUGS (4)
  1. DONEPEZIL (DONEPEZIL) [Suspect]
     Indication: DEMENTIA ALZHEIMER^S TYPE
     Dosage: 5MG (5MG, 1 IN 1D) ORAL
     Route: 048
     Dates: start: 20130308, end: 20130310
  2. AMLODIPINE (AMLODIPINE) [Concomitant]
  3. ASPIRIN (ACETYLSALICYLIC ACID) [Concomitant]
  4. SERTRALINE (SERTRALINE) [Concomitant]

REACTIONS (9)
  - Syncope [None]
  - Pallor [None]
  - Cold sweat [None]
  - Unresponsive to stimuli [None]
  - Tremor [None]
  - Eye movement disorder [None]
  - Vomiting [None]
  - Sinus bradycardia [None]
  - Atrial fibrillation [None]
